FAERS Safety Report 7937765-8 (Version None)
Quarter: 2011Q4

REPORT INFORMATION
  Report Type: 
  Country: None (occurrence: None)
  Receive Date: 20111123
  Receipt Date: 20111118
  Transmission Date: 20120403
  Serious: Yes (Death, Hospitalization)
  Sender: FDA-Public Use
  Company Number: PHEH2011US07997

PATIENT
  Sex: Female
  Weight: 64 kg

DRUGS (6)
  1. RECLAST [Suspect]
     Indication: OSTEOPOROSIS
     Dosage: 5 MG, YEARLY
     Route: 042
  2. AMLODIPINE [Concomitant]
     Indication: HYPERTENSION
     Dosage: 1 DF, QD
     Route: 048
  3. SEROQUEL [Concomitant]
     Indication: AFFECTIVE DISORDER
     Dosage: 1 DF, QD
     Route: 048
     Dates: start: 20080101
  4. ARICEPT [Concomitant]
     Indication: DEMENTIA
     Dosage: 1 DF, QD
     Route: 048
     Dates: start: 20080101
  5. METOPROLOL TARTRATE [Concomitant]
     Indication: HYPERTENSION
     Dosage: 1 DF, BID
     Route: 048
  6. NAMENDA [Concomitant]
     Indication: DEMENTIA
     Dosage: 1 DF, BID
     Route: 048
     Dates: start: 20080101

REACTIONS (5)
  - ADENOCARCINOMA [None]
  - OVARIAN CANCER [None]
  - ABDOMINAL DISTENSION [None]
  - OVARIAN CANCER METASTATIC [None]
  - ASCITES [None]
